FAERS Safety Report 16724138 (Version 3)
Quarter: 2025Q4

REPORT INFORMATION
  Report Type: Spontaneous
  Country: CA (occurrence: CA)
  Receive Date: 20190821
  Receipt Date: 20251217
  Transmission Date: 20260117
  Serious: Yes (Other)
  Sender: AUROBINDO
  Company Number: CA-AUROBINDO-AUR-APL-2019-053937

PATIENT
  Age: 33 Year
  Sex: Male

DRUGS (10)
  1. CEFUROXIME [Interacting]
     Active Substance: CEFUROXIME
     Indication: Wound infection
     Dosage: 500 MILLIGRAM, TWO TIMES A DAY
     Route: 065
  2. INFLECTRA [Suspect]
     Active Substance: INFLIXIMAB-DYYB
     Indication: Crohn^s disease
     Dosage: 800 MILLIGRAM
  3. INFLECTRA [Suspect]
     Active Substance: INFLIXIMAB-DYYB
     Indication: Colitis ulcerative
  4. INFLIXIMAB [Interacting]
     Active Substance: INFLIXIMAB
     Indication: Crohn^s disease
     Dosage: 800 MILLIGRAM
  5. CIPROFLOXACIN [Concomitant]
     Active Substance: CIPROFLOXACIN
     Indication: Wound infection
     Dosage: UNK
     Route: 065
  6. CLINDAMYCIN [Concomitant]
     Active Substance: CLINDAMYCIN
     Indication: Wound infection
     Dosage: UNK
     Route: 065
  7. METHOTREXATE [Concomitant]
     Active Substance: METHOTREXATE
     Indication: Product used for unknown indication
     Dosage: UNK
     Route: 065
  8. PREDNISONE [Concomitant]
     Active Substance: PREDNISONE
     Indication: Product used for unknown indication
     Dosage: 70 MILLIGRAM, ONCE A DAY
     Route: 065
  9. CLOBETASOL [Concomitant]
     Active Substance: CLOBETASOL
     Indication: Pyoderma gangrenosum
     Dosage: UNK
     Route: 065
  10. FLOVENT [Concomitant]
     Active Substance: FLUTICASONE PROPIONATE
     Indication: Pyoderma gangrenosum
     Dosage: UNK
     Route: 065

REACTIONS (7)
  - Skin ulcer [Not Recovered/Not Resolved]
  - Blood pressure fluctuation [Not Recovered/Not Resolved]
  - Wound infection [Not Recovered/Not Resolved]
  - Wound secretion [Not Recovered/Not Resolved]
  - Drug interaction [Not Recovered/Not Resolved]
  - Therapeutic response shortened [Not Recovered/Not Resolved]
  - Drug ineffective [Not Recovered/Not Resolved]
